FAERS Safety Report 22916534 (Version 4)
Quarter: 2023Q4

REPORT INFORMATION
  Report Type: Spontaneous
  Country: AT (occurrence: AT)
  Receive Date: 20230907
  Receipt Date: 20231009
  Transmission Date: 20240109
  Serious: Yes (Other)
  Sender: FDA-Public Use
  Company Number: AT-ROCHE-2273718

PATIENT
  Age: 61 Year
  Sex: Female
  Weight: 55 kg

DRUGS (46)
  1. AROMASIN [Suspect]
     Active Substance: EXEMESTANE
     Indication: HER2 positive breast cancer
     Dosage: 25 MG, QD
     Route: 065
     Dates: start: 20180719
  2. EXEMESTANE [Suspect]
     Active Substance: EXEMESTANE
     Indication: HER2 positive breast cancer
     Dosage: 25 MG,QD
     Route: 048
     Dates: start: 20180719, end: 20190507
  3. FEMARA [Suspect]
     Active Substance: LETROZOLE
     Indication: HER2 positive breast cancer
     Dosage: 2.5 MG, QD
     Route: 048
     Dates: start: 20190508, end: 20190819
  4. HERCEPTIN [Suspect]
     Active Substance: TRASTUZUMAB
     Indication: HER2 positive breast cancer
     Dosage: 440 MG MOST RECENT DOSE PRIOR TO THE EVENT: 30/AUG/2018
     Route: 042
     Dates: start: 20180719, end: 20180719
  5. KADCYLA [Suspect]
     Active Substance: ADO-TRASTUZUMAB EMTANSINE
     Indication: HER2 positive breast cancer
     Dosage: MOST RECENT DOSE PRIOR TO AE 29/AUG/2019
     Route: 042
     Dates: start: 20190829
  6. LETROZOLE [Suspect]
     Active Substance: LETROZOLE
     Indication: HER2 positive breast cancer
     Dosage: 2.5 MG, QD (LAST DOSE RECEIVED ON 19/AUG/2019)
     Route: 048
     Dates: start: 20190508, end: 20190819
  7. NAVELBINE [Suspect]
     Active Substance: VINORELBINE TARTRATE
     Indication: HER2 positive breast cancer
     Dosage: 50 MG
     Route: 048
     Dates: start: 20180719, end: 20181130
  8. NAVELBINE [Suspect]
     Active Substance: VINORELBINE TARTRATE
     Dosage: 50 MG
     Route: 048
     Dates: start: 20181210
  9. PERJETA [Suspect]
     Active Substance: PERTUZUMAB
     Dosage: 420 MG, MOST RECENT DOSE PRIOR TO THE EVENT: 09/AUG/2018
     Route: 042
     Dates: start: 20180809
  10. PERJETA [Suspect]
     Active Substance: PERTUZUMAB
     Indication: HER2 positive breast cancer
     Dosage: 840 MG, TIW
     Route: 042
     Dates: start: 20180719, end: 20180719
  11. PERTUZUMAB [Suspect]
     Active Substance: PERTUZUMAB
     Indication: HER2 positive breast cancer
     Dosage: 840 MG, TIW
     Route: 042
     Dates: start: 20180719, end: 20180719
  12. PERTUZUMAB [Suspect]
     Active Substance: PERTUZUMAB
     Dosage: 840 MG,3 (MOST RECENT DOSE PRIOR TO THE EVENT: 09/AUG/2018)
     Route: 042
     Dates: start: 20180719, end: 20180719
  13. PERTUZUMAB [Suspect]
     Active Substance: PERTUZUMAB
     Dosage: MOST RECENT DOSE PRIOR TO THE EVENT: 09/AUG/2018
     Route: 042
     Dates: end: 20180719
  14. PERTUZUMAB [Suspect]
     Active Substance: PERTUZUMAB
     Dosage: 420 MG MOST RECENT DOSE PRIOR TO THE EVENT: 09/AUG/2018
     Route: 042
     Dates: start: 20180809
  15. PERTUZUMAB [Suspect]
     Active Substance: PERTUZUMAB
     Dosage: 440 MG, TIW(MOST RECENT DOSE PRIOR TO THE EVENT: 30/AUG/2018)
     Route: 042
     Dates: start: 20180719, end: 20180719
  16. TRASTUZUMAB [Suspect]
     Active Substance: TRASTUZUMAB
     Indication: HER2 positive breast cancer
     Dosage: 440 MG, Q3W (MOST RECENT DOSE PRIOR TO THE EVENT: 30 AUG 2018)
     Route: 042
     Dates: start: 20181129
  17. TRASTUZUMAB [Suspect]
     Active Substance: TRASTUZUMAB
     Dosage: 440 MG, TIW (MOST RECENT DOSE PRIOR TO THE EVENT: 30/AUG/2018)
     Route: 042
     Dates: start: 20180719, end: 20180719
  18. TRASTUZUMAB [Suspect]
     Active Substance: TRASTUZUMAB
     Dosage: UNK ON 16/MAY/2019, MOST RECENT DOSETRASTUZUMAB (ONTRAZUNAT)
     Route: 042
     Dates: start: 20181129
  19. TRASTUZUMAB [Suspect]
     Active Substance: TRASTUZUMAB
     Dosage: 440 MG, TIW (MOST RECENT DOSE PRIOR TO THE EVENT: 30/AUG/2018)
     Route: 042
     Dates: start: 20180719, end: 20180719
  20. ADO-TRASTUZUMAB EMTANSINE [Suspect]
     Active Substance: ADO-TRASTUZUMAB EMTANSINE
     Indication: HER2 positive breast cancer
     Dosage: 201.6 MG, TIW (LAST DOSE ON 29/AUG/2019)
     Route: 042
     Dates: start: 20190829, end: 20190829
  21. VINORELBINE [Suspect]
     Active Substance: VINORELBINE TARTRATE
     Indication: HER2 positive breast cancer
     Dosage: 50 MG,0.33 (MOST RECENT DOSE PRIOR TO THE EVENT PERIPHERAL NEUROPATHY IN THE FINGERS: 30/NOV/2018)
     Route: 048
     Dates: start: 20180719, end: 20181130
  22. VINORELBINE [Suspect]
     Active Substance: VINORELBINE TARTRATE
     Dosage: 2.5 MG, QD LAST DOSE RECEIVED ON 19/AUG/2019
     Route: 048
     Dates: start: 20190508, end: 20190819
  23. VINORELBINE [Suspect]
     Active Substance: VINORELBINE TARTRATE
     Dosage: 50 MG
     Route: 048
     Dates: start: 20181210
  24. AMOXICILLIN [Concomitant]
     Active Substance: AMOXICILLIN
     Indication: Product used for unknown indication
     Dosage: UNK
     Route: 065
     Dates: start: 20191215
  25. AMOXICILLIN\CLAVULANIC ACID [Concomitant]
     Active Substance: AMOXICILLIN\CLAVULANIC ACID
     Indication: Product used for unknown indication
     Dosage: UNK
     Route: 065
     Dates: start: 20191215, end: 20191215
  26. AUGMENTIN [Concomitant]
     Active Substance: AMOXICILLIN\CLAVULANATE POTASSIUM
     Indication: Product used for unknown indication
     Dosage: UNK (ONGOING = NOT CHECKED)
     Route: 065
     Dates: start: 20191215, end: 20191215
  27. VITAMINS WITH MINERALS [Concomitant]
     Active Substance: MINERALS\VITAMINS
     Indication: Product used for unknown indication
     Dosage: UNK (ONGOING = CHECKED)
     Route: 065
     Dates: start: 20181205
  28. DEXABENE [Concomitant]
     Indication: Product used for unknown indication
     Dosage: UNK
     Route: 065
     Dates: start: 20180809, end: 20190704
  29. DEXAMETHASONE [Concomitant]
     Active Substance: DEXAMETHASONE
     Indication: Product used for unknown indication
     Dosage: UNK (ONGOING = CHECKED)
     Route: 065
     Dates: start: 20190829
  30. ESOMEPRAZOLE [Concomitant]
     Active Substance: ESOMEPRAZOLE
     Indication: Dyspepsia
     Dosage: UNK
     Route: 065
     Dates: start: 20180727, end: 20190615
  31. ESOMEPRAZOLE [Concomitant]
     Active Substance: ESOMEPRAZOLE
     Indication: Nausea
  32. EUTHYROX [Concomitant]
     Active Substance: LEVOTHYROXINE SODIUM
     Indication: Product used for unknown indication
     Dosage: UNK
     Route: 065
  33. DIMETHINDENE [Concomitant]
     Active Substance: DIMETHINDENE
     Indication: Product used for unknown indication
     Dosage: UNK
     Route: 065
     Dates: start: 20180809, end: 20190704
  34. DEXAMETHASONE [Concomitant]
     Active Substance: DEXAMETHASONE
     Indication: Vertigo
     Dosage: UNK (ONGOING = CHECKED)
     Route: 065
     Dates: start: 20191114
  35. HYDROMORPHONE HYDROCHLORIDE [Concomitant]
     Active Substance: HYDROMORPHONE HYDROCHLORIDE
     Indication: Product used for unknown indication
     Dosage: UNK
     Route: 065
     Dates: start: 20180727
  36. IMODIUM [Concomitant]
     Active Substance: LOPERAMIDE HYDROCHLORIDE
     Indication: Diarrhoea
     Dosage: UNK
     Route: 065
     Dates: start: 20180731
  37. IMODIUM [Concomitant]
     Active Substance: LOPERAMIDE HYDROCHLORIDE
     Indication: Diarrhoea
  38. KYTRIL [Concomitant]
     Active Substance: GRANISETRON HYDROCHLORIDE
     Indication: Product used for unknown indication
     Dosage: UNK (ONGOING = CHECKED)
     Route: 065
     Dates: start: 20190829
  39. MACROGOL 4000 CAELO [Concomitant]
     Indication: Product used for unknown indication
     Dosage: UNK
     Route: 065
     Dates: start: 20180719
  40. MAGNESIUM SUCCINATE [Concomitant]
     Indication: Product used for unknown indication
     Dosage: UNK (ONGOING = CHECKED)
     Route: 065
     Dates: start: 20190819
  41. Novalgin [Concomitant]
     Indication: Product used for unknown indication
     Dosage: UNK
     Route: 065
     Dates: start: 20180727
  42. ONDANSETRON HYDROCHLORIDE [Concomitant]
     Active Substance: ONDANSETRON HYDROCHLORIDE
     Indication: Product used for unknown indication
     Dosage: UNK
     Route: 065
     Dates: start: 20180709, end: 20190206
  43. RANITIDINE HYDROCHLORIDE [Concomitant]
     Active Substance: RANITIDINE HYDROCHLORIDE
     Indication: Product used for unknown indication
     Dosage: UNK
     Route: 065
     Dates: start: 20180809, end: 20190704
  44. Vertirosan [Concomitant]
     Indication: Vertigo
     Dosage: UNK
     Route: 065
     Dates: start: 20191218
  45. XGEVA [Concomitant]
     Active Substance: DENOSUMAB
     Indication: Product used for unknown indication
     Dosage: UNK
     Route: 065
     Dates: start: 20181215
  46. ZOFRAN [Concomitant]
     Active Substance: ONDANSETRON HYDROCHLORIDE
     Indication: Product used for unknown indication
     Dosage: UNK
     Route: 065
     Dates: start: 20180920, end: 20190615

REACTIONS (7)
  - Neuropathy peripheral [Unknown]
  - Conjunctivitis [Recovered/Resolved]
  - Muscle spasms [Not Recovered/Not Resolved]
  - Conjunctivitis [Recovered/Resolved]
  - Conjunctivitis [Recovered/Resolved]
  - Breast pain [Recovered/Resolved]
  - Headache [Recovered/Resolved]

NARRATIVE: CASE EVENT DATE: 20190131
